FAERS Safety Report 16795631 (Version 1)
Quarter: 2019Q3

REPORT INFORMATION
  Report Type: Spontaneous
  Country: ES (occurrence: ES)
  Receive Date: 20190911
  Receipt Date: 20190911
  Transmission Date: 20191005
  Serious: Yes (Other)
  Sender: FDA-Public Use
  Company Number: ES-BAUSCH-BL-2019-025133

PATIENT
  Sex: Female
  Weight: 65 kg

DRUGS (21)
  1. PREDNISOLONE. [Suspect]
     Active Substance: PREDNISOLONE
     Indication: DIFFUSE LARGE B-CELL LYMPHOMA
     Route: 065
  2. VEPESIDE [Concomitant]
     Active Substance: ETOPOSIDE
     Indication: PRODUCT USED FOR UNKNOWN INDICATION
     Dosage: FOR 3 DAYS
     Route: 065
     Dates: start: 20181112
  3. METHYLPREDNISOLONE. [Suspect]
     Active Substance: METHYLPREDNISOLONE
     Indication: DIFFUSE LARGE B-CELL LYMPHOMA
     Route: 065
     Dates: start: 20160616, end: 20160927
  4. CARBOPLATIN. [Suspect]
     Active Substance: CARBOPLATIN
     Indication: DIFFUSE LARGE B-CELL LYMPHOMA
     Dosage: FOR 1 DAY
     Route: 065
     Dates: start: 20181112
  5. MESNA. [Concomitant]
     Active Substance: MESNA
     Indication: PRODUCT USED FOR UNKNOWN INDICATION
     Dosage: FOR 1 DAY
     Route: 065
     Dates: start: 20181112
  6. ETOPOSIDE PHOSPHATE [Suspect]
     Active Substance: ETOPOSIDE PHOSPHATE
     Indication: DIFFUSE LARGE B-CELL LYMPHOMA
     Route: 065
  7. MABTHERA [Suspect]
     Active Substance: RITUXIMAB
     Dosage: RITUXIMAB RECEIVED ON 17/DEC/2018, 13/FEB/2019 AND 19/MAR/2019.
     Route: 042
     Dates: start: 20190213
  8. IFOSFAMIDE. [Suspect]
     Active Substance: IFOSFAMIDE
     Indication: DIFFUSE LARGE B-CELL LYMPHOMA
     Dosage: FOR 1 DAY
     Route: 065
     Dates: start: 20181112
  9. ETOPOSIDE. [Suspect]
     Active Substance: ETOPOSIDE
     Indication: DIFFUSE LARGE B-CELL LYMPHOMA
     Route: 065
     Dates: start: 20160616, end: 20160927
  10. ETOPOSIDE. [Suspect]
     Active Substance: ETOPOSIDE
     Dosage: FOR 3 DAYS
     Route: 065
     Dates: start: 20181112
  11. MABTHERA [Suspect]
     Active Substance: RITUXIMAB
     Indication: DIFFUSE LARGE B-CELL LYMPHOMA
     Route: 042
     Dates: start: 20160616, end: 20160927
  12. MABTHERA [Suspect]
     Active Substance: RITUXIMAB
     Dosage: RITUXIMAB RECEIVED ON 17/DEC/2018, 13/FEB/2019 AND 19/MAR/2019.
     Route: 042
     Dates: start: 20190319
  13. VINCRISTINE [Suspect]
     Active Substance: VINCRISTINE
     Indication: DIFFUSE LARGE B-CELL LYMPHOMA
     Route: 065
  14. CYTARABINE. [Suspect]
     Active Substance: CYTARABINE
     Indication: DIFFUSE LARGE B-CELL LYMPHOMA
     Route: 065
     Dates: start: 20160616, end: 20160927
  15. CYCLOPHOSPHAMIDE. [Suspect]
     Active Substance: CYCLOPHOSPHAMIDE
     Indication: DIFFUSE LARGE B-CELL LYMPHOMA
     Route: 065
  16. DOXORUBICIN [Suspect]
     Active Substance: DOXORUBICIN
     Indication: DIFFUSE LARGE B-CELL LYMPHOMA
     Route: 065
  17. MABTHERA [Suspect]
     Active Substance: RITUXIMAB
     Dosage: RITUXIMAB RECEIVED ON 17/DEC/2018, 13/FEB/2019 AND 19/MAR/2019.
     Route: 042
     Dates: start: 20181112
  18. GEMCITABINE. [Suspect]
     Active Substance: GEMCITABINE
     Indication: DIFFUSE LARGE B-CELL LYMPHOMA
     Route: 065
  19. CISPLATIN. [Suspect]
     Active Substance: CISPLATIN
     Indication: DIFFUSE LARGE B-CELL LYMPHOMA
     Route: 065
     Dates: start: 20160616, end: 20160927
  20. MABTHERA [Suspect]
     Active Substance: RITUXIMAB
     Dosage: RITUXIMAB RECEIVED ON 17/DEC/2018, 13/FEB/2019 AND 19/MAR/2019.
     Route: 042
     Dates: start: 20181217
  21. VINORELBINE [Suspect]
     Active Substance: VINORELBINE TARTRATE
     Indication: DIFFUSE LARGE B-CELL LYMPHOMA
     Route: 065

REACTIONS (6)
  - Seizure [Unknown]
  - Transient ischaemic attack [Unknown]
  - Vena cava thrombosis [Unknown]
  - Platelet count decreased [Not Recovered/Not Resolved]
  - Hemiparesis [Unknown]
  - Cerebrovascular accident [Unknown]
